FAERS Safety Report 5573434-X (Version None)
Quarter: 2007Q4

REPORT INFORMATION
  Report Type: 
  Country: None (occurrence: None)
  Receive Date: 20071226
  Receipt Date: 20071211
  Transmission Date: 20080405
  Serious: Yes (Hospitalization, Other)
  Sender: FDA-Public Use
  Company Number: FR-BAYER-200718223GPV

PATIENT
  Age: 21 Year
  Sex: Female

DRUGS (6)
  1. CIFLOX [Suspect]
     Indication: ESCHERICHIA URINARY TRACT INFECTION
     Dosage: TOTAL DAILY DOSE: 500 MG  UNIT DOSE: 250 MG
     Route: 048
     Dates: start: 20070707, end: 20070715
  2. VENOFER [Suspect]
     Indication: IRON DEFICIENCY ANAEMIA
     Route: 042
     Dates: start: 20070709, end: 20070709
  3. KEPPRA [Suspect]
     Indication: EPILEPSY
     Dosage: TOTAL DAILY DOSE: 1000 MG  UNIT DOSE: 500 MG
     Route: 048
     Dates: start: 20070707
  4. URBANYL [Suspect]
     Indication: EPILEPSY
     Dosage: TOTAL DAILY DOSE: 5 MG  UNIT DOSE: 5 MG
     Route: 048
     Dates: end: 20070712
  5. EPITOMAX [Concomitant]
     Indication: EPILEPSY
     Dosage: TOTAL DAILY DOSE: 200 MG  UNIT DOSE: 100 MG
     Route: 048
  6. RIVOTRIL [Concomitant]
     Indication: EPILEPSY
     Route: 042
     Dates: start: 20070709, end: 20070712

REACTIONS (1)
  - EPILEPSY [None]
